FAERS Safety Report 5304915-1 (Version None)
Quarter: 2007Q2

REPORT INFORMATION
  Report Type: 
  Country: None (occurrence: None)
  Receive Date: 20070416
  Receipt Date: 20070402
  Transmission Date: 20071010
  Serious: Yes (Other)
  Sender: FDA-Public Use
  Company Number: US019536

PATIENT
  Age: 56 Year
  Sex: Male

DRUGS (9)
  1. PROVIGIL [Suspect]
     Indication: DISTURBANCE IN ATTENTION
     Dosage: 200 MG QAM; ORAL
     Route: 048
     Dates: start: 20070129, end: 20070220
  2. PROVIGIL [Suspect]
     Indication: FATIGUE
     Dosage: 200 MG QAM; ORAL
     Route: 048
     Dates: start: 20070129, end: 20070220
  3. PRILOSEC [Concomitant]
  4. TRAZODONE HCL [Concomitant]
  5. ASPIRIN [Concomitant]
  6. LIPITOR [Concomitant]
  7. TYLENOL EXTRA-STRENGTH [Concomitant]
  8. NITROGLYCERIN [Concomitant]
  9. VISTARIL [Concomitant]

REACTIONS (4)
  - GRAND MAL CONVULSION [None]
  - INCORRECT DOSE ADMINISTERED [None]
  - UNDERDOSE [None]
  - WRONG TECHNIQUE IN DRUG USAGE PROCESS [None]
